FAERS Safety Report 10418756 (Version 1)
Quarter: 2014Q2

REPORT INFORMATION
  Report Type: Report from Study
  Country: US (occurrence: None)
  Receive Date: 20140627
  Receipt Date: 20140627
  Transmission Date: 20141212
  Serious: No
  Sender: FDA-Public Use
  Company Number: CABO-14004242

PATIENT
  Age: 55 Year
  Sex: Female

DRUGS (8)
  1. COMETRIQ (CABOZANTINIB) CAPSULE [Suspect]
     Indication: THYROID CANCER
     Route: 048
     Dates: start: 20140421, end: 20140425
  2. ZANTAC (RANITIDINE HYDROCHLORIDE) [Concomitant]
  3. CHANTIX (VARENICLINE TARTRATE) [Concomitant]
  4. TRAZODONE(TRAZODONE) [Concomitant]
  5. LEVOTHYROXINE (LEVOTHYROXINE) [Concomitant]
  6. HYDROCODONE(HYDROCODONE) [Concomitant]
  7. ASPIRIN (ACETYLSALICYLIC ACID) [Concomitant]
  8. COPAXONE (GLATIRAMER ACETATE) [Concomitant]

REACTIONS (2)
  - Pain in extremity [None]
  - Stomatitis [None]
